FAERS Safety Report 5709525-X (Version None)
Quarter: 2008Q2

REPORT INFORMATION
  Report Type: 
  Country: None (occurrence: None)
  Receive Date: 20080418
  Receipt Date: 20080409
  Transmission Date: 20081010
  Serious: Yes (Other)
  Sender: FDA-Public Use
  Company Number: GB-NOVOPROD-263380

PATIENT
  Sex: Female
  Weight: 73.016 kg

DRUGS (20)
  1. MIXTARD HUMAN 70/30 [Suspect]
     Indication: DRUG USE FOR UNKNOWN INDICATION
     Dosage: UNK, BID
     Dates: start: 20070417, end: 20070425
  2. MIXTARD HUMAN 70/30 [Suspect]
     Dosage: UNK, BID
  3. AMITRIPTYLINE HCL [Concomitant]
     Dosage: 25 MG, QD
  4. ISOSORBIDE MONONITRATE [Concomitant]
     Dosage: 20 MG, TID
  5. ASPIRIN [Concomitant]
     Dosage: 75 MG, QD
     Route: 048
  6. AQUEOUS COX [Concomitant]
     Dosage: UNK, BID
  7. FERROUS SULPHATE                   /00023503/ [Concomitant]
     Dosage: 200 MG, QD
  8. HYPROMELLOSE [Concomitant]
  9. SIMVASTATIN [Concomitant]
     Dosage: 20 MG, QD
  10. BETAMETHASONE VALERATE [Concomitant]
  11. SYMBICORT [Concomitant]
     Dosage: 2 PUFF, BID
     Route: 055
  12. ACETAMINOPHEN W/ CODEINE [Concomitant]
  13. BETAHISTINE DIHYDROCHLORIDE [Concomitant]
     Dosage: 8 MG, TID
  14. HYDROCORTISONE [Concomitant]
  15. ALBUTEROL [Concomitant]
     Dosage: 2 PUFF, UNK
     Route: 055
  16. METFORMIN HCL [Concomitant]
     Dosage: 500 MG, TID
  17. CANDESARTAN CILEXETIL [Concomitant]
     Dosage: 2 MG, QD
  18. ADCAL-D3 [Concomitant]
     Dosage: UNK, BID
     Route: 048
  19. VITAMIN B-12 [Concomitant]
     Dates: start: 20030101
  20. GLYCERYL TRINITRATE [Concomitant]
     Dosage: 400 UG, QD

REACTIONS (7)
  - BURNING SENSATION [None]
  - CHEST PAIN [None]
  - DYSPNOEA [None]
  - EYE SWELLING [None]
  - FEELING COLD [None]
  - PRURITUS [None]
  - RASH GENERALISED [None]
